FAERS Safety Report 7741936-3 (Version None)
Quarter: 2011Q3

REPORT INFORMATION
  Report Type: 
  Country: None (occurrence: None)
  Receive Date: 20110912
  Receipt Date: 20110902
  Transmission Date: 20111222
  Serious: Yes (Other)
  Sender: FDA-Public Use
  Company Number: US-JNJFOC-20110902938

PATIENT
  Sex: Female
  Weight: 77.11 kg

DRUGS (2)
  1. DOXORUBICIN HCL [Suspect]
     Indication: OVARIAN CANCER
     Route: 042
     Dates: start: 20110601
  2. CHEMOTHERAPEUTICS NOS [Suspect]
     Indication: OVARIAN CANCER
     Route: 065
     Dates: start: 20110101

REACTIONS (2)
  - HYPERTENSIVE CRISIS [None]
  - DRUG DOSE OMISSION [None]
